FAERS Safety Report 4612502-3 (Version None)
Quarter: 2005Q1

REPORT INFORMATION
  Report Type: 
  Country: None (occurrence: None)
  Receive Date: 20050318
  Receipt Date: 20040224
  Transmission Date: 20050727
  Serious: Yes (Life-Threatening, Hospitalization)
  Sender: FDA-Public Use
  Company Number: 200410598JP

PATIENT
  Age: 62 Year
  Sex: Female
  Weight: 45 kg

DRUGS (8)
  1. ARAVA [Suspect]
     Indication: RHEUMATOID ARTHRITIS
     Route: 048
     Dates: start: 20040117, end: 20040209
  2. ZYLORIC [Suspect]
     Route: 048
     Dates: start: 20020910, end: 20040220
  3. RHEUMATREX [Concomitant]
     Indication: RHEUMATOID ARTHRITIS
     Route: 048
     Dates: start: 19960601, end: 20040219
  4. D-PENICILLAMINE [Concomitant]
     Indication: RHEUMATOID ARTHRITIS
     Route: 048
     Dates: start: 19931211, end: 20040219
  5. ALLOZYM [Concomitant]
     Indication: HYPERURICAEMIA
     Route: 048
     Dates: start: 19951202, end: 20040219
  6. PREDONINE [Concomitant]
     Indication: RHEUMATOID ARTHRITIS
     Route: 048
     Dates: start: 20040219, end: 20040219
  7. ALFAROL [Concomitant]
     Route: 048
     Dates: start: 20020910, end: 20040220
  8. ADALAT [Concomitant]
     Route: 048
     Dates: start: 20020910, end: 20040220

REACTIONS (20)
  - ACTIVATED PARTIAL THROMBOPLASTIN TIME PROLONGED [None]
  - AGRANULOCYTOSIS [None]
  - ARRHYTHMIA [None]
  - ARTHRALGIA [None]
  - BLEEDING TIME PROLONGED [None]
  - BONE MARROW DEPRESSION [None]
  - CATHETER RELATED INFECTION [None]
  - CONDITION AGGRAVATED [None]
  - DEHYDRATION [None]
  - DIALYSIS [None]
  - DIARRHOEA [None]
  - DISSEMINATED INTRAVASCULAR COAGULATION [None]
  - ENTEROCOCCAL INFECTION [None]
  - EPISTAXIS [None]
  - PANCYTOPENIA [None]
  - PHARYNGEAL ULCERATION [None]
  - PURPURA [None]
  - RENAL FAILURE [None]
  - RENAL IMPAIRMENT [None]
  - STOMATITIS [None]
